FAERS Safety Report 10599995 (Version 2)
Quarter: 2014Q4

REPORT INFORMATION
  Report Type: Spontaneous
  Country: IE (occurrence: IE)
  Receive Date: 20141121
  Receipt Date: 20141121
  Transmission Date: 20150529
  Serious: Yes (Life-Threatening, Hospitalization)
  Sender: FDA-Public Use
  Company Number: IE-ASTRAZENECA-2014SE82208

PATIENT
  Sex: Female

DRUGS (3)
  1. EVRA PATCH [Concomitant]
     Indication: CONTRACEPTION
     Dosage: WEEKLY
     Route: 062
     Dates: start: 201403
  2. ENTOCORT [Suspect]
     Active Substance: BUDESONIDE
     Indication: CROHN^S DISEASE
     Route: 048
     Dates: start: 20141010
  3. ENTOCORT [Suspect]
     Active Substance: BUDESONIDE
     Indication: COLITIS
     Route: 048
     Dates: start: 20141010

REACTIONS (2)
  - Anaphylactic reaction [Recovered/Resolved]
  - Adverse drug reaction [Recovered/Resolved]
